FAERS Safety Report 25396379 (Version 1)
Quarter: 2025Q2

REPORT INFORMATION
  Report Type: Spontaneous
  Country: HR (occurrence: HR)
  Receive Date: 20250604
  Receipt Date: 20250604
  Transmission Date: 20250717
  Serious: Yes (Other)
  Sender: MYLAN
  Company Number: None

PATIENT
  Sex: Male

DRUGS (4)
  1. LYRICA [Suspect]
     Active Substance: PREGABALIN
     Indication: Product used for unknown indication
     Dosage: 2700 MILLIGRAM, QD
     Dates: start: 202504, end: 202504
  2. XANAX XR [Suspect]
     Active Substance: ALPRAZOLAM
     Indication: Product used for unknown indication
     Dosage: 20 MILLIGRAM, QD
     Dates: start: 202504, end: 202504
  3. WELLBUTRIN [Suspect]
     Active Substance: BUPROPION HYDROCHLORIDE
     Indication: Product used for unknown indication
     Dosage: 4500 MILLIGRAM, QD
     Dates: start: 202504, end: 202504
  4. ALPRAZOLAM [Suspect]
     Active Substance: ALPRAZOLAM
     Indication: Product used for unknown indication
     Dosage: 10 MILLIGRAM, QD
     Dates: start: 202504, end: 202504

REACTIONS (5)
  - Somnolence [Unknown]
  - Suicide attempt [Unknown]
  - Alcohol abuse [Unknown]
  - Drug abuse [Unknown]
  - Overdose [Unknown]

NARRATIVE: CASE EVENT DATE: 20250401
